FAERS Safety Report 16444319 (Version 2)
Quarter: 2020Q2

REPORT INFORMATION
  Report Type: Spontaneous
  Country: IT (occurrence: IT)
  Receive Date: 20190618
  Receipt Date: 20200416
  Transmission Date: 20200713
  Serious: Yes (Other)
  Sender: FDA-Public Use
  Company Number: IT-AUROBINDO-AUR-APL-2019-034214

PATIENT
  Age: 78 Year
  Sex: Male
  Weight: 79 kg

DRUGS (1)
  1. CARBOPLATIN. [Suspect]
     Active Substance: CARBOPLATIN
     Indication: NON-SMALL CELL LUNG CANCER
     Dosage: 95 MILLIGRAM, CYCLICAL (1 CYCLE)
     Route: 042

REACTIONS (2)
  - Extravasation [Recovering/Resolving]
  - Vascular access site swelling [Recovering/Resolving]

NARRATIVE: CASE EVENT DATE: 20190208
